FAERS Safety Report 5912636-7 (Version None)
Quarter: 2008Q4

REPORT INFORMATION
  Report Type: 
  Country: None (occurrence: None)
  Receive Date: 20081008
  Receipt Date: 20080925
  Transmission Date: 20090506
  Serious: Yes (Other)
  Sender: FDA-Public Use
  Company Number: US-ELI_LILLY_AND_COMPANY-US200809005881

PATIENT
  Sex: Female
  Weight: 38.095 kg

DRUGS (6)
  1. FORTEO [Suspect]
     Indication: OSTEOPOROSIS
     Dosage: 20 UG, DAILY (1/D)
  2. SYNTHROID [Concomitant]
     Dosage: 112 UG, DAILY (1/D)
  3. ASPIRIN [Concomitant]
     Dosage: 81 MG, DAILY (1/D)
  4. COD-LIVER OIL [Concomitant]
  5. CALCIUM [Concomitant]
     Dosage: 600 MG, DAILY (1/D)
  6. PROTEIN SUPPLEMENTS [Concomitant]

REACTIONS (7)
  - ALOPECIA [None]
  - CARDIAC DISORDER [None]
  - CEREBROVASCULAR ACCIDENT [None]
  - FAT TISSUE INCREASED [None]
  - MEMORY IMPAIRMENT [None]
  - SKIN ATROPHY [None]
  - WEIGHT INCREASED [None]
